FAERS Safety Report 12133843 (Version 1)
Quarter: 2016Q1

REPORT INFORMATION
  Report Type: Spontaneous
  Country: NO (occurrence: NO)
  Receive Date: 20160301
  Receipt Date: 20160301
  Transmission Date: 20160526
  Serious: Yes (Other)
  Sender: FDA-Public Use
  Company Number: NO-TEVA-638847USA

PATIENT
  Age: 59 Year
  Sex: Female

DRUGS (1)
  1. ADASUVE [Suspect]
     Active Substance: LOXAPINE
     Indication: AGITATION
     Route: 055
     Dates: start: 20151127, end: 20151127

REACTIONS (2)
  - Dyspnoea [Recovered/Resolved]
  - Cough [Recovered/Resolved]
